FAERS Safety Report 6733279-1 (Version None)
Quarter: 2010Q2

REPORT INFORMATION
  Report Type: 
  Country: None (occurrence: None)
  Receive Date: 20100520
  Receipt Date: 20100511
  Transmission Date: 20101027
  Serious: Yes (Hospitalization, Other)
  Sender: FDA-Public Use
  Company Number: DE-JNJFOC-20090708855

PATIENT
  Age: 87 Year
  Sex: Female

DRUGS (5)
  1. TAVANIC [Suspect]
     Indication: UROSEPSIS
     Route: 048
  2. AMARYL [Concomitant]
     Indication: TYPE 2 DIABETES MELLITUS
     Route: 048
  3. RAMIPRIL [Concomitant]
     Indication: HYPERTENSION
     Route: 048
  4. DIPYRONE TAB [Concomitant]
     Indication: PAIN
     Route: 048
  5. PANTOPRAZOLE SODIUM [Concomitant]
     Indication: PROPHYLAXIS AGAINST GASTROINTESTINAL ULCER
     Route: 048

REACTIONS (3)
  - DIARRHOEA [None]
  - DIVERTICULITIS [None]
  - PROCTITIS [None]
